FAERS Safety Report 24062485 (Version 2)
Quarter: 2024Q3

REPORT INFORMATION
  Report Type: Report from Study
  Country: AR (occurrence: AR)
  Receive Date: 20240708
  Receipt Date: 20240813
  Transmission Date: 20241016
  Serious: Yes (Hospitalization, Other)
  Sender: ELI LILLY AND CO
  Company Number: AR-Merck Healthcare KGaA-2024029674

PATIENT
  Age: 69 Year
  Sex: Male

DRUGS (1)
  1. CETUXIMAB [Suspect]
     Active Substance: CETUXIMAB
     Indication: Colorectal cancer
     Dosage: 438 MG/M2, WEEKLY (1/W)
     Route: 042
     Dates: start: 20230531, end: 202404

REACTIONS (10)
  - Intestinal obstruction [Recovering/Resolving]
  - Suicidal ideation [Recovering/Resolving]
  - Wound dehiscence [Recovering/Resolving]
  - Muscle atrophy [Unknown]
  - Dizziness [Unknown]
  - Respiratory tract infection [Recovering/Resolving]
  - Peripheral swelling [Unknown]
  - Weight decreased [Unknown]
  - Diarrhoea [Unknown]
  - Off label use [Unknown]

NARRATIVE: CASE EVENT DATE: 20240624
